FAERS Safety Report 8476290-5 (Version None)
Quarter: 2012Q2

REPORT INFORMATION
  Report Type: 
  Country: None (occurrence: None)
  Receive Date: 20120628
  Receipt Date: 20120613
  Transmission Date: 20120825
  Serious: Yes (Other)
  Sender: FDA-Public Use
  Company Number: DE-FRI-1000036596

PATIENT
  Sex: Female

DRUGS (25)
  1. DIPIPERON [Interacting]
     Dosage: 40 MG
     Route: 048
     Dates: start: 20120327, end: 20120327
  2. DIPIPERON [Interacting]
     Dosage: 80 MG
     Route: 048
     Dates: start: 20120402, end: 20120403
  3. VENLAFAXINE HYDROCHLORIDE [Interacting]
     Indication: ASTHENIA
     Dosage: 75 MG
     Route: 048
     Dates: start: 20120405, end: 20120405
  4. DIPIPERON [Interacting]
     Dosage: 40 MG
     Route: 048
     Dates: start: 20120406, end: 20120406
  5. YAZ [Concomitant]
     Dosage: 0.02 MG ETHINYLESTRADIOL / 3 MG DROSPIRENONE
     Route: 048
  6. ESCITALOPRAM [Suspect]
     Dosage: 10 MG
     Route: 048
     Dates: start: 20120309, end: 20120309
  7. ESCITALOPRAM [Interacting]
     Dosage: 10 MG
     Route: 048
     Dates: start: 20120323, end: 20120404
  8. DIPIPERON [Interacting]
     Indication: INITIAL INSOMNIA
     Dosage: 40 MG
     Route: 048
     Dates: start: 20120306, end: 20120306
  9. DIPIPERON [Interacting]
     Dosage: 40 MG
     Route: 048
     Dates: start: 20120310, end: 20120312
  10. DIPIPERON [Interacting]
     Dosage: 80 MG
     Route: 048
     Dates: start: 20120321, end: 20120321
  11. DIPIPERON [Interacting]
     Dosage: 40 MG
     Route: 048
     Dates: start: 20120323, end: 20120323
  12. DIPIPERON [Interacting]
     Dosage: 40 MG
     Route: 048
     Dates: start: 20120401, end: 20120401
  13. FEXOFENADINE HCL [Concomitant]
     Dosage: 240 MG
     Route: 048
     Dates: start: 20120323, end: 20120323
  14. DIPIPERON [Interacting]
     Indication: MIDDLE INSOMNIA
     Dosage: 40 MG
     Route: 048
     Dates: start: 20120308, end: 20120308
  15. DIPIPERON [Interacting]
     Dosage: 20 MG
     Route: 048
     Dates: start: 20120309, end: 20120309
  16. VENLAFAXINE HYDROCHLORIDE [Interacting]
     Dosage: 150 MG
     Route: 048
     Dates: start: 20120406, end: 20120406
  17. DIPIPERON [Interacting]
     Dosage: 80 MG
     Route: 048
     Dates: start: 20120318, end: 20120318
  18. DIPIPERON [Interacting]
     Dosage: 40 MG
     Route: 048
     Dates: start: 20120404, end: 20120404
  19. FEXOFENADINE HCL [Concomitant]
     Dosage: 120 MG
     Route: 048
     Dates: start: 20120324
  20. DIPIPERON [Interacting]
     Dosage: 20 MG
     Route: 048
     Dates: start: 20120313, end: 20120313
  21. DIPIPERON [Interacting]
     Dosage: 80 MG
     Route: 048
     Dates: start: 20120325, end: 20120325
  22. ESCITALOPRAM [Interacting]
     Dosage: 20 MG
     Route: 048
     Dates: start: 20120310, end: 20120322
  23. DIPIPERON [Interacting]
     Dosage: 40 MG
     Route: 048
     Dates: start: 20120316, end: 20120316
  24. DIPIPERON [Interacting]
     Dosage: 160 MG
     Route: 048
     Dates: start: 20120319, end: 20120319
  25. DIPIPERON [Interacting]
     Dosage: 80 MG
     Route: 048
     Dates: start: 20120330, end: 20120330

REACTIONS (3)
  - GALACTORRHOEA [None]
  - POTENTIATING DRUG INTERACTION [None]
  - HYPERHIDROSIS [None]
